FAERS Safety Report 21886989 (Version 1)
Quarter: 2023Q1

REPORT INFORMATION
  Report Type: Report from Study
  Country: US (occurrence: US)
  Receive Date: 20230119
  Receipt Date: 20230119
  Transmission Date: 20230418
  Serious: Yes (Death, Other)
  Sender: FDA-Public Use
  Company Number: US-GILEAD-2022-0605139

PATIENT
  Age: 50 Year
  Sex: Female
  Weight: 78.7 kg

DRUGS (1)
  1. SACITUZUMAB GOVITECAN-HZIY [Suspect]
     Active Substance: SACITUZUMAB GOVITECAN-HZIY
     Indication: Neoplasm malignant
     Dosage: UNK
     Route: 065
     Dates: start: 20220808

REACTIONS (2)
  - Death [Fatal]
  - Weight fluctuation [Unknown]
